FAERS Safety Report 16754017 (Version 3)
Quarter: 2019Q3

REPORT INFORMATION
  Report Type: Spontaneous
  Country: TR (occurrence: TR)
  Receive Date: 20190829
  Receipt Date: 20190920
  Transmission Date: 20191005
  Serious: Yes (Other)
  Sender: FDA-Public Use
  Company Number: TR-PFIZER INC-2019368725

PATIENT
  Age: 37 Year
  Sex: Female
  Weight: 76 kg

DRUGS (1)
  1. CYTOTEC [Suspect]
     Active Substance: MISOPROSTOL
     Indication: ABORTION INDUCED
     Dosage: 400 UG, SINGLE (2 TABLETS X 200 UG)
     Route: 060
     Dates: start: 20190808, end: 20190808

REACTIONS (5)
  - Drug ineffective for unapproved indication [Unknown]
  - Maternal exposure during pregnancy [Unknown]
  - Swollen tongue [Recovered/Resolved]
  - Pruritus [Recovered/Resolved]
  - Off label use [Unknown]

NARRATIVE: CASE EVENT DATE: 20190808
